FAERS Safety Report 13345357 (Version 1)
Quarter: 2017Q1

REPORT INFORMATION
  Report Type: Spontaneous
  Country: US (occurrence: US)
  Receive Date: 20170316
  Receipt Date: 20170316
  Transmission Date: 20170428
  Serious: Yes (Disabling)
  Sender: FDA-Public Use
  Company Number: None

PATIENT
  Age: 53 Year
  Sex: Female
  Weight: 72 kg

DRUGS (3)
  1. CIPROFLOXACIN 250 MG TABLETS [Suspect]
     Active Substance: CIPROFLOXACIN
     Indication: URINARY TRACT INFECTION
     Dosage: ?          QUANTITY:10 TABLET(S);?
     Route: 048
     Dates: start: 20170228, end: 20170305
  2. MULTIVITAMIN [Concomitant]
     Active Substance: VITAMINS
  3. ADVIL [Concomitant]
     Active Substance: IBUPROFEN

REACTIONS (14)
  - Activities of daily living impaired [None]
  - Plicated tongue [None]
  - Abdominal discomfort [None]
  - Lip haemorrhage [None]
  - Dizziness [None]
  - Dry mouth [None]
  - Headache [None]
  - Pain in extremity [None]
  - Scalloped tongue [None]
  - Glossodynia [None]
  - Diarrhoea [None]
  - Dysphonia [None]
  - Chapped lips [None]
  - Swollen tongue [None]

NARRATIVE: CASE EVENT DATE: 20170305
